FAERS Safety Report 6215710-3 (Version None)
Quarter: 2009Q2

REPORT INFORMATION
  Report Type: 
  Country: None (occurrence: None)
  Receive Date: 20090605
  Receipt Date: 20090526
  Transmission Date: 20091009
  Serious: Yes (Hospitalization)
  Sender: FDA-Public Use
  Company Number: FR-BAYER-200922049GPV

PATIENT
  Age: 81 Year
  Sex: Male

DRUGS (12)
  1. CHRONADALATE [Suspect]
     Indication: HYPERTENSION
     Route: 048
     Dates: end: 20090327
  2. LASIX [Suspect]
     Indication: CARDIAC FAILURE
     Route: 065
     Dates: start: 20090327, end: 20090401
  3. PREVISCAN [Suspect]
     Indication: ATRIAL FIBRILLATION
     Route: 065
     Dates: start: 20060602, end: 20090503
  4. TAVANIC [Suspect]
     Indication: BRONCHITIS
     Dosage: UNIT DOSE: 500 MG
     Route: 048
     Dates: start: 20090327, end: 20090330
  5. TAZOCILLINE [Suspect]
     Indication: BRONCHITIS
     Dosage: UNIT DOSE: 4 G
     Route: 042
     Dates: start: 20090403, end: 20090417
  6. AMIKLIN [Suspect]
     Indication: BRONCHITIS
     Dosage: UNIT DOSE: 900 MG
     Route: 042
     Dates: start: 20090403, end: 20090408
  7. TIENAM [Suspect]
     Indication: BRONCHITIS
     Dosage: UNIT DOSE: 1 G
     Route: 065
     Dates: start: 20090429, end: 20090505
  8. SYMBICORT [Suspect]
     Indication: CHRONIC OBSTRUCTIVE PULMONARY DISEASE
     Route: 055
     Dates: start: 20090330
  9. BRICANYL [Suspect]
     Indication: CHRONIC OBSTRUCTIVE PULMONARY DISEASE
     Route: 065
     Dates: start: 20090330
  10. ATROVENT [Suspect]
     Indication: CHRONIC OBSTRUCTIVE PULMONARY DISEASE
     Route: 065
     Dates: start: 20090330
  11. CORDARONE [Suspect]
     Indication: VENTRICULAR TACHYCARDIA
     Route: 065
     Dates: start: 20090327, end: 20090429
  12. AMLOR [Suspect]
     Indication: HYPERTENSION
     Route: 065
     Dates: start: 20090328, end: 20090331

REACTIONS (2)
  - AGRANULOCYTOSIS [None]
  - LYMPHOPENIA [None]
